FAERS Safety Report 13046146 (Version 7)
Quarter: 2017Q2

REPORT INFORMATION
  Report Type: Report from Study
  Country: US (occurrence: US)
  Receive Date: 20161220
  Receipt Date: 20170530
  Transmission Date: 20170830
  Serious: Yes (Other)
  Sender: FDA-Public Use
  Company Number: US-009507513-1612USA006491

PATIENT
  Age: 74 Year
  Sex: Male

DRUGS (5)
  1. PEMBROLIZUMAB. [Suspect]
     Active Substance: PEMBROLIZUMAB
     Indication: NON-SMALL CELL LUNG CANCER
     Dosage: 165 MG, Q3W
     Route: 042
     Dates: start: 20161208, end: 20161208
  2. VITAMIN D [Concomitant]
     Active Substance: CHOLECALCIFEROL
  3. ASPIRIN. [Concomitant]
     Active Substance: ASPIRIN
     Route: 048
  4. PEMBROLIZUMAB. [Suspect]
     Active Substance: PEMBROLIZUMAB
     Dosage: 170 MG, Q3W
     Route: 042
     Dates: start: 20161228, end: 20161228
  5. PEMBROLIZUMAB. [Suspect]
     Active Substance: PEMBROLIZUMAB
     Dosage: 165 MG, Q3W
     Route: 042
     Dates: start: 20170118, end: 20170118

REACTIONS (16)
  - Fatigue [Not Recovered/Not Resolved]
  - Viral upper respiratory tract infection [Unknown]
  - Abasia [Unknown]
  - Haemolysis [Unknown]
  - Blood bilirubin abnormal [Unknown]
  - Asthenia [Recovering/Resolving]
  - Myalgia [Recovered/Resolved]
  - Haemoglobin decreased [Unknown]
  - Hepatic pain [Recovering/Resolving]
  - Thyroid hormones decreased [Unknown]
  - Hunger [Unknown]
  - Arthralgia [Recovered/Resolved]
  - Red blood cell count decreased [Unknown]
  - Hepatomegaly [Unknown]
  - Malignant neoplasm progression [Recovered/Resolved]
  - Weight increased [Not Recovered/Not Resolved]

NARRATIVE: CASE EVENT DATE: 2016
